FAERS Safety Report 24314583 (Version 1)
Quarter: 2024Q3

REPORT INFORMATION
  Report Type: Spontaneous
  Country: RO (occurrence: RO)
  Receive Date: 20240913
  Receipt Date: 20240913
  Transmission Date: 20241017
  Serious: Yes (Hospitalization, Other)
  Sender: ACCORD
  Company Number: RO-Accord-445961

PATIENT
  Age: 63 Year
  Sex: Male

DRUGS (2)
  1. TIGECYCLINE [Suspect]
     Active Substance: TIGECYCLINE
     Indication: Urinary tract infection
     Dosage: 200 MG IV LOAD
  2. TIGECYCLINE [Suspect]
     Active Substance: TIGECYCLINE
     Indication: Urinary tract infection

REACTIONS (4)
  - Liver injury [Recovered/Resolved]
  - Cholestasis [Recovered/Resolved]
  - Coagulopathy [Recovered/Resolved]
  - Hypofibrinogenaemia [Recovered/Resolved]
